FAERS Safety Report 5869593-1 (Version None)
Quarter: 2008Q3

REPORT INFORMATION
  Report Type: 
  Country: None (occurrence: None)
  Receive Date: 20080904
  Receipt Date: 20070726
  Transmission Date: 20090109
  Serious: No
  Sender: FDA-Public Use
  Company Number: US-KINGPHARMUSA00001-K200700951

PATIENT

DRUGS (3)
  1. CYTOMEL [Suspect]
     Indication: HYPERTONIA
     Dosage: 80 MCG, QD
     Route: 048
  2. CYTOMEL [Suspect]
     Indication: BODY MASS INDEX
  3. ALL KINDS OF SUPPLEMENTS [Concomitant]

REACTIONS (2)
  - INTENTIONAL DRUG MISUSE [None]
  - NO ADVERSE EVENT [None]
